FAERS Safety Report 6454715-4 (Version None)
Quarter: 2009Q4

REPORT INFORMATION
  Report Type: 
  Country: None (occurrence: None)
  Receive Date: 20091118
  Receipt Date: 20091103
  Transmission Date: 20100525
  Serious: Yes (Hospitalization, Other)
  Sender: FDA-Public Use
  Company Number: 091116-0001172

PATIENT
  Age: 32 Year
  Sex: Male

DRUGS (7)
  1. MEBARAL (MEPHOBARBITAL) [Suspect]
     Indication: ANXIETY
     Dosage: 800 MG; QD;
     Dates: start: 20080101
  2. MEPROBAMIC ACID (NO PREF. NAME) [Suspect]
     Indication: ANXIETY
     Dosage: 1200 MG; QD;
     Dates: start: 20080101
  3. TRAZODONE HCL [Suspect]
     Indication: ANXIETY
     Dosage: 150 MG; QD;
     Dates: start: 20080101
  4. ESCITALOPRAM [Suspect]
     Indication: ANXIETY
     Dosage: 10 MG; QD;
     Dates: start: 20080101
  5. QUETIAPINE FUMARATE [Suspect]
     Indication: ANXIETY
     Dosage: 500 MG; QD;
     Dates: start: 20080101
  6. ALPRAZOLAM [Concomitant]
  7. METAZEPAM [Concomitant]

REACTIONS (8)
  - ABDOMINAL DISTENSION [None]
  - CHILLS [None]
  - DYSURIA [None]
  - IMPAIRED GASTRIC EMPTYING [None]
  - MOOD SWINGS [None]
  - PANIC ATTACK [None]
  - SELF-INJURIOUS IDEATION [None]
  - SUICIDAL IDEATION [None]
